FAERS Safety Report 9254898 (Version 3)
Quarter: 2014Q2

REPORT INFORMATION
  Report Type: Spontaneous
  Country: BR (occurrence: BR)
  Receive Date: 20130425
  Receipt Date: 20140403
  Transmission Date: 20141212
  Serious: Yes (Hospitalization, Other)
  Sender: FDA-Public Use
  Company Number: PHHY2013BR040490

PATIENT
  Sex: Female
  Weight: 65 kg

DRUGS (2)
  1. TEGRETOL [Suspect]
     Indication: CONVULSION
     Dosage: 1 DF, QID
     Route: 048
  2. VALIUM [Concomitant]
     Indication: ANXIETY
     Dosage: 1 DF, Q8H
     Route: 048

REACTIONS (13)
  - Neuroendocrine tumour [Recovering/Resolving]
  - Depression [Not Recovered/Not Resolved]
  - Burnout syndrome [Recovered/Resolved]
  - Visual impairment [Not Recovered/Not Resolved]
  - Emotional disorder [Not Recovered/Not Resolved]
  - Anxiety [Not Recovered/Not Resolved]
  - Hypoaesthesia [Not Recovered/Not Resolved]
  - Loss of control of legs [Not Recovered/Not Resolved]
  - Heart rate increased [Not Recovered/Not Resolved]
  - Headache [Not Recovered/Not Resolved]
  - Tremor [Not Recovered/Not Resolved]
  - Dizziness [Not Recovered/Not Resolved]
  - Fatigue [Recovered/Resolved]
